FAERS Safety Report 8493196-6 (Version None)
Quarter: 2012Q3

REPORT INFORMATION
  Report Type: 
  Country: None (occurrence: None)
  Receive Date: 20120706
  Receipt Date: 20120621
  Transmission Date: 20120928
  Serious: No
  Sender: FDA-Public Use
  Company Number: US-ASTRAZENECA-2012SE42154

PATIENT
  Age: 65 Year
  Sex: Female

DRUGS (7)
  1. PRILOSEC [Concomitant]
  2. CRESTOR [Suspect]
     Route: 048
  3. METFORMIN HCL [Concomitant]
  4. ACTOS [Concomitant]
  5. JANUVIA [Concomitant]
  6. CRESTOR [Suspect]
     Indication: HYPERLIPIDAEMIA
     Route: 048
  7. FOSAMAX [Concomitant]

REACTIONS (2)
  - MYALGIA [None]
  - OFF LABEL USE [None]
